FAERS Safety Report 7721195-8 (Version None)
Quarter: 2011Q3

REPORT INFORMATION
  Report Type: 
  Country: None (occurrence: None)
  Receive Date: 20110825
  Receipt Date: 20110811
  Transmission Date: 20111222
  Serious: Yes (Hospitalization)
  Sender: FDA-Public Use
  Company Number: 15968209

PATIENT
  Age: 56 Year
  Sex: Female

DRUGS (4)
  1. WARFARIN SODIUM [Suspect]
     Indication: EMBOLISM
     Dosage: 4 MILLIGRAM 1 DAY ORAL
     Route: 048
     Dates: start: 20110520
  2. ENOXAPARIN SODIUM [Suspect]
     Indication: EMBOLISM
     Dosage: 1 MILLILITER IV
     Route: 042
     Dates: start: 20110520, end: 20110525
  3. APIXABAN [Suspect]
     Indication: EMBOLISM
     Dosage: 20 MILLIGRAM 1 DAY ORAL
     Route: 048
     Dates: start: 20110520
  4. PLACEBO [Suspect]
     Indication: EMBOLISM
     Dates: start: 20110520

REACTIONS (1)
  - NEOPLASM MALIGNANT [None]
